FAERS Safety Report 7219440-0 (Version None)
Quarter: 2011Q1

REPORT INFORMATION
  Report Type: 
  Country: None (occurrence: None)
  Receive Date: 20110103
  Receipt Date: 20101220
  Transmission Date: 20110831
  Serious: Yes (Other)
  Sender: FDA-Public Use
  Company Number: 024133

PATIENT
  Age: 60 Year
  Sex: Female

DRUGS (3)
  1. KEPPRA [Suspect]
     Dosage: (750 MG BID)
  2. TEGRETOL [Concomitant]
  3. LEVETIRACETAM [Suspect]
     Dosage: (FOR LAST 5 YEARS)

REACTIONS (1)
  - BONE NEOPLASM [None]
